FAERS Safety Report 9653093 (Version 1)
Quarter: 2013Q4

REPORT INFORMATION
  Report Type: Spontaneous
  Country: US (occurrence: US)
  Receive Date: 20131029
  Receipt Date: 20131029
  Transmission Date: 20140711
  Serious: No
  Sender: FDA-Public Use
  Company Number: US-BIOGENIDEC-2013BI078605

PATIENT
  Age: 26 Year
  Sex: Female

DRUGS (10)
  1. TECFIDERA [Suspect]
     Indication: MULTIPLE SCLEROSIS
     Route: 048
     Dates: start: 20130705
  2. VITAMIN D [Concomitant]
  3. XANAX [Concomitant]
  4. PREVACID [Concomitant]
  5. LYRICA [Concomitant]
  6. VITAMIN B [Concomitant]
  7. OXYCODONE [Concomitant]
  8. NUVIGIL [Concomitant]
  9. LIDODERM [Concomitant]
  10. DEPO-PROVERA [Concomitant]

REACTIONS (1)
  - Flushing [Not Recovered/Not Resolved]
